FAERS Safety Report 10050692 (Version 1)
Quarter: 2014Q2

REPORT INFORMATION
  Report Type: Spontaneous
  Country: US (occurrence: US)
  Receive Date: 20140401
  Receipt Date: 20140401
  Transmission Date: 20141212
  Serious: No
  Sender: FDA-Public Use
  Company Number: US-ASTRAZENECA-2013SE66835

PATIENT
  Age: 524 Month
  Sex: Female

DRUGS (6)
  1. NEXIUM [Suspect]
     Indication: GASTROOESOPHAGEAL REFLUX DISEASE
     Dosage: NEXIUM TEMPORARY STOPPED
     Route: 048
     Dates: start: 199303
  2. NEXIUM [Suspect]
     Indication: GASTROOESOPHAGEAL REFLUX DISEASE
     Route: 048
     Dates: start: 199308, end: 199311
  3. NEXIUM [Suspect]
     Indication: GASTROOESOPHAGEAL REFLUX DISEASE
     Route: 048
     Dates: end: 2010
  4. PRILOSEC OTC [Suspect]
     Indication: GASTROOESOPHAGEAL REFLUX DISEASE
     Route: 048
     Dates: start: 201105
  5. INSULIN [Concomitant]
     Indication: DIABETES MELLITUS
  6. LIPITOR [Concomitant]

REACTIONS (11)
  - Road traffic accident [Unknown]
  - Weight decreased [Unknown]
  - Diabetes mellitus [Unknown]
  - Cardiac failure chronic [Unknown]
  - Liver disorder [Unknown]
  - Abdominal distension [Unknown]
  - Syncope [Unknown]
  - Reflux gastritis [Unknown]
  - Iron deficiency [Unknown]
  - Malaise [Unknown]
  - Off label use [Recovered/Resolved]
